FAERS Safety Report 22368851 (Version 1)
Quarter: 2023Q2

REPORT INFORMATION
  Report Type: Spontaneous
  Country: US (occurrence: None)
  Receive Date: 20230525
  Receipt Date: 20230525
  Transmission Date: 20230722
  Serious: No
  Sender: FDA-Public Use
  Company Number: None

PATIENT
  Sex: Male

DRUGS (1)
  1. SKYRIZI [Suspect]
     Active Substance: RISANKIZUMAB-RZAA
     Indication: Crohn^s disease
     Dosage: 360MG  EVERY 6 WEEKS SUBCUTANEOUS?
     Route: 058
     Dates: start: 20230516

REACTIONS (5)
  - Skin disorder [None]
  - Hyperaesthesia [None]
  - Back pain [None]
  - Pain in extremity [None]
  - Drug ineffective [None]
